FAERS Safety Report 22233573 (Version 1)
Quarter: 2023Q2

REPORT INFORMATION
  Report Type: Spontaneous
  Country: US (occurrence: US)
  Receive Date: 20230420
  Receipt Date: 20230420
  Transmission Date: 20230722
  Serious: No
  Sender: FDA-Public Use
  Company Number: US-AUROBINDO-AUR-APL-2022-031439

PATIENT
  Sex: Female

DRUGS (1)
  1. CINACALCET HYDROCHLORIDE [Suspect]
     Active Substance: CINACALCET HYDROCHLORIDE
     Indication: Product used for unknown indication
     Dosage: 1 DOSAGE FORM, DAILY
     Route: 065

REACTIONS (6)
  - Muscle spasms [Unknown]
  - Fatigue [Unknown]
  - Decreased appetite [Unknown]
  - Middle insomnia [Unknown]
  - Hypoaesthesia [Unknown]
  - Blood calcium increased [Unknown]
